FAERS Safety Report 7124915-9 (Version None)
Quarter: 2010Q4

REPORT INFORMATION
  Report Type: 
  Country: None (occurrence: None)
  Receive Date: 20101129
  Receipt Date: 20101117
  Transmission Date: 20110411
  Serious: Yes (Hospitalization)
  Sender: FDA-Public Use
  Company Number: FR-ELI_LILLY_AND_COMPANY-FR200610001989

PATIENT
  Sex: Male

DRUGS (8)
  1. SOMATROPIN [Suspect]
     Indication: GROWTH HORMONE DEFICIENCY
     Dosage: 0.3 MG, PER DAY
     Route: 058
     Dates: start: 20040113
  2. LEXOMIL [Concomitant]
     Indication: DEPRESSION
     Dates: start: 20030101
  3. HYDROCORTISONE [Concomitant]
     Indication: ADRENAL INSUFFICIENCY
     Dates: start: 19700101
  4. LEVOTHYROXINE SODIUM [Concomitant]
     Indication: HYPOTHYROIDISM
     Dates: start: 19700101
  5. ANDROTARDYL [Concomitant]
     Indication: HYPOGONADISM
     Dates: start: 19700101
  6. EFFEXOR [Concomitant]
     Indication: DEPRESSION
     Dosage: 37.5 MG, PER DAY
     Dates: start: 20050101
  7. EFFEXOR [Concomitant]
     Dosage: 100 MG, PER DAY
  8. EFFEXOR [Concomitant]
     Dosage: 50 MG, PER DAY

REACTIONS (1)
  - DEPRESSION [None]
